FAERS Safety Report 17510283 (Version 1)
Quarter: 2020Q1

REPORT INFORMATION
  Report Type: Report from Study
  Country: US (occurrence: US)
  Receive Date: 20200306
  Receipt Date: 20200306
  Transmission Date: 20200409
  Serious: Yes (Hospitalization)
  Sender: FDA-Public Use
  Company Number: US-MYLANLABS-2020M1025186

PATIENT
  Age: 4 Decade
  Sex: Male

DRUGS (6)
  1. PREDNISONE. [Suspect]
     Active Substance: PREDNISONE
     Dosage: 60 MILLIGRAM, QD
     Route: 065
  2. ALBENDAZOLE. [Concomitant]
     Active Substance: ALBENDAZOLE
     Indication: NEUROCYSTICERCOSIS
     Dosage: SCHEDULED TO RECEIVE 8-DAY COURSE
     Route: 065
     Dates: start: 200209
  3. METHOTREXATE. [Concomitant]
     Active Substance: METHOTREXATE
     Indication: PROPHYLAXIS
     Route: 065
     Dates: start: 20030123
  4. PREDNISONE. [Suspect]
     Active Substance: PREDNISONE
     Indication: NEUROCYSTICERCOSIS
     Dosage: 40 MILLIGRAM, QD
     Route: 065
     Dates: start: 200209
  5. ALBENDAZOLE. [Concomitant]
     Active Substance: ALBENDAZOLE
     Dosage: WAS RESTARTED LATER DISCONTINUED
     Route: 065
     Dates: end: 200303
  6. DEXAMETHASONE. [Suspect]
     Active Substance: DEXAMETHASONE
     Indication: NEUROCYSTICERCOSIS
     Dosage: 12 MILLIGRAM, QD
     Route: 065
     Dates: end: 200307

REACTIONS (1)
  - Arthropathy [Unknown]
